FAERS Safety Report 9538800 (Version 1)
Quarter: 2013Q2

REPORT INFORMATION
  Report Type: Spontaneous
  Country: US (occurrence: None)
  Receive Date: 20130517
  Receipt Date: 20130517
  Transmission Date: 20140414
  Serious: No
  Sender: FDA-Public Use
  Company Number: 1000044210

PATIENT
  Age: 52 Year
  Sex: Female

DRUGS (8)
  1. VIIBRYD (VILAZODONE HYDROCHLORIDE) (10 MILLIGRAM, TABLETS) [Suspect]
     Indication: DEPRESSION
     Route: 048
     Dates: start: 201112, end: 201112
  2. OMEPRAZOLE (OMEPRAZOLE) (OMEPRAZOLE) [Concomitant]
  3. ESTRADIOL (ESTRADIOL) (ESTRADIOL) [Concomitant]
  4. PROGESTERONE (PROGESTERONE) (PROGESTRONE) [Concomitant]
  5. KETOROLAC (KETOROLAC) (KETOROLAC) [Concomitant]
  6. TOPIRAMATE (TOPIRAMATE) (TOPIRAMATE) [Concomitant]
  7. SPIRONOLACTONE (SPIRONOLACTONE) (SPIRONOLACTONE) [Concomitant]
  8. CAMBIA (DICLOFENAC POTASSIUM) (DICLOFENAC POTASSIUM) [Concomitant]

REACTIONS (5)
  - Hepatic enzyme [None]
  - Vitamin B12 decreased [None]
  - Vitamin D decreased [None]
  - Influenza [None]
  - Gastroenteritis viral [None]
